FAERS Safety Report 24626935 (Version 2)
Quarter: 2025Q4

REPORT INFORMATION
  Report Type: Spontaneous
  Country: US (occurrence: US)
  Receive Date: 20241115
  Receipt Date: 20251119
  Transmission Date: 20260117
  Serious: No
  Sender: NOVO NORDISK
  Company Number: US-NOVOPROD-1266528

PATIENT
  Sex: Female

DRUGS (1)
  1. NOVOLOG [Suspect]
     Active Substance: INSULIN ASPART
     Indication: Product used for unknown indication
     Dosage: UNK
     Route: 058

REACTIONS (6)
  - Vomiting [Unknown]
  - Drug hypersensitivity [Unknown]
  - Nausea [Unknown]
  - Dyspnoea [Unknown]
  - Rash [Unknown]
  - Abdominal discomfort [Unknown]
